FAERS Safety Report 5828677-4 (Version None)
Quarter: 2008Q3

REPORT INFORMATION
  Report Type: 
  Country: None (occurrence: None)
  Receive Date: 20080731
  Receipt Date: 20080725
  Transmission Date: 20090109
  Serious: Yes (Hospitalization)
  Sender: FDA-Public Use
  Company Number: US-BRISTOL-MYERS SQUIBB COMPANY-14278345

PATIENT
  Age: 47 Year
  Sex: Male
  Weight: 163 kg

DRUGS (2)
  1. CISPLATIN [Suspect]
     Indication: HEAD AND NECK CANCER
     Dosage: START DATE 15MAY08. DATE OF COURSE ASSOCIATED WITH REPORT 26JUN08.
     Route: 042
     Dates: start: 20080605, end: 20080605
  2. RADIATION THERAPY [Suspect]
     Indication: HEAD AND NECK CANCER
     Dosage: 70 DOSAGEFORM = 70 GY. NUMBER OF FRACTIONS 35. NUMBER OF ELASPSED DAYS 42.
     Dates: start: 20080626, end: 20080626

REACTIONS (1)
  - SIALOADENITIS [None]
